FAERS Safety Report 10223471 (Version 2)
Quarter: 2014Q4

REPORT INFORMATION
  Report Type: Spontaneous
  Country: US (occurrence: None)
  Receive Date: 20140605
  Receipt Date: 20141103
  Transmission Date: 20150528
  Serious: Yes (Other)
  Sender: FDA-Public Use
  Company Number: 2014-19651

PATIENT
  Age: 84 Year
  Sex: Female

DRUGS (9)
  1. CLARITIN (GLICLAZIDE) [Concomitant]
     Active Substance: GLICLAZIDE
  2. VITAMIN D (ERGOCALCIFEROL) [Concomitant]
     Active Substance: ERGOCALCIFEROL
  3. PRESERVISION (ASCORBIC ACID, BETACAROTINE, CUPRIC OXIDE, TOCOPHERYL ACETATE, ZINC OXIDE) [Concomitant]
  4. EVISTA [Concomitant]
     Active Substance: RALOXIFENE HYDROCHLORIDE
  5. BENAZEPRIL HCT (BENAZEPRIL HYDROCHLORIDE, HYDROCHLOROTHIAZIDE)) [Concomitant]
  6. ALPRAZOLAM (ALPRAZOLAM) [Concomitant]
     Active Substance: ALPRAZOLAM
  7. DILTIA (DILTAZEM HYDROCHLORIDE) [Concomitant]
  8. EYLEA [Suspect]
     Active Substance: AFLIBERCEPT
     Indication: AGE-RELATED MACULAR DEGENERATION
     Dates: start: 20120329, end: 20140520
  9. LOVASTATIN (LOVASTATIN) [Concomitant]
     Active Substance: LOVASTATIN

REACTIONS (8)
  - Iris adhesions [None]
  - Visual acuity reduced [None]
  - Vitreous floaters [None]
  - Vitreous opacities [None]
  - Blindness [None]
  - Anterior chamber cell [None]
  - Lacrimation increased [None]
  - Vision blurred [None]

NARRATIVE: CASE EVENT DATE: 20140527
